FAERS Safety Report 10057567 (Version 2)
Quarter: 2014Q2

REPORT INFORMATION
  Report Type: Spontaneous
  Country: SK (occurrence: SK)
  Receive Date: 20140404
  Receipt Date: 20140411
  Transmission Date: 20141212
  Serious: Yes (Hospitalization)
  Sender: FDA-Public Use
  Company Number: PHHY2014SK040227

PATIENT
  Sex: Male

DRUGS (6)
  1. TASIGNA [Suspect]
     Indication: CHRONIC MYELOID LEUKAEMIA
     Dosage: 800 MG, DAILY
     Dates: start: 20110820, end: 20140218
  2. ASPIRIN [Concomitant]
  3. TROMBEX [Concomitant]
     Dosage: UNK
  4. TRITACE [Concomitant]
  5. TRIMEPRANOL [Concomitant]
     Dosage: UNK
  6. CORVATON FORTE [Concomitant]

REACTIONS (3)
  - Myocardial infarction [Unknown]
  - Arrhythmia [Not Recovered/Not Resolved]
  - Angina unstable [Unknown]
